FAERS Safety Report 10224868 (Version 2)
Quarter: 2014Q2

REPORT INFORMATION
  Report Type: Spontaneous
  Country: US (occurrence: US)
  Receive Date: 20140609
  Receipt Date: 20140609
  Transmission Date: 20141212
  Serious: No
  Sender: FDA-Public Use
  Company Number: US-009507513-1405USA010593

PATIENT
  Sex: Female
  Weight: 113.38 kg

DRUGS (7)
  1. ZEGERID OTC CAPSULES [Suspect]
     Indication: GASTROOESOPHAGEAL REFLUX DISEASE
     Dosage: 20 MG, BID
     Route: 048
     Dates: start: 2012
  2. RITALIN [Concomitant]
     Indication: NARCOLEPSY
     Dosage: UNK, UNKNOWN
  3. RESTASIS [Concomitant]
     Indication: DRY EYE
     Dosage: UNK, UNKNOWN
  4. CYANOCOBALAMIN [Concomitant]
     Indication: PERNICIOUS ANAEMIA
     Dosage: UNK, UNKNOWN
  5. LEVOTHYROXINE SODIUM [Concomitant]
     Indication: HYPOTHYROIDISM
     Dosage: UNK, UNKNOWN
  6. GLUCOSAMINE [Concomitant]
     Indication: PRODUCT USED FOR UNKNOWN INDICATION
     Dosage: UNK, UNKNOWN
  7. ASPIRIN [Concomitant]
     Indication: PRODUCT USED FOR UNKNOWN INDICATION
     Dosage: UNK, UNKNOWN

REACTIONS (3)
  - Prescribed overdose [Unknown]
  - Incorrect drug administration duration [Unknown]
  - Drug prescribing error [Unknown]
